FAERS Safety Report 9203435 (Version 1)
Quarter: 2013Q1

REPORT INFORMATION
  Report Type: Spontaneous
  Country: US (occurrence: None)
  Receive Date: 20130329
  Receipt Date: 20130329
  Transmission Date: 20140127
  Serious: No
  Sender: FDA-Public Use
  Company Number: None

PATIENT
  Age: 57 Year
  Sex: Male
  Weight: 75.4 kg

DRUGS (2)
  1. IOPROMIDE [Suspect]
     Indication: CARDIOVASCULAR DISORDER
     Dates: start: 20130303, end: 20130320
  2. IOPROMIDE [Suspect]
     Indication: SURGERY
     Dates: start: 20130303, end: 20130320

REACTIONS (3)
  - Blood urea increased [None]
  - Blood creatinine increased [None]
  - Nephropathy toxic [None]
